FAERS Safety Report 6355451-5 (Version None)
Quarter: 2009Q3

REPORT INFORMATION
  Report Type: 
  Country: None (occurrence: None)
  Receive Date: 20090914
  Receipt Date: 20090904
  Transmission Date: 20100115
  Serious: Yes (Other)
  Sender: FDA-Public Use
  Company Number: PHEH2009US10527

PATIENT
  Sex: Female

DRUGS (4)
  1. RECLAST [Suspect]
     Indication: OSTEOPENIA
     Dosage: 5 MG, UNK
     Dates: start: 20080101
  2. LASIX [Concomitant]
  3. NEXIUM [Concomitant]
  4. LEVOXYL [Concomitant]

REACTIONS (3)
  - DELIRIUM [None]
  - PYREXIA [None]
  - TREMOR [None]
